FAERS Safety Report 8933916 (Version 1)
Quarter: 2012Q4

REPORT INFORMATION
  Report Type: 
  Country: IT (occurrence: IT)
  Receive Date: 20121129
  Receipt Date: 20121129
  Transmission Date: 20130627
  Serious: Yes (Hospitalization)
  Sender: FDA-Public Use
  Company Number: IT-SANOFI-AVENTIS-2012SA084824

PATIENT
  Age: 82 Year
  Sex: Male

DRUGS (6)
  1. CLOPIDOGREL BISULFATE [Suspect]
     Indication: ISCHAEMIC CARDIOMYOPATHY
     Dosage: strength: 75 mg Dose:1 unit(s)
     Route: 048
     Dates: start: 20120401, end: 20121107
  2. CARDIOASPIRIN [Suspect]
     Indication: ISCHAEMIC CARDIOMYOPATHY
     Dosage: strength:100 mg Dose:1 unit(s)
     Route: 048
     Dates: start: 20120101, end: 20121107
  3. LAMIVUDINE [Concomitant]
     Route: 048
  4. PANTOPRAZOLE [Concomitant]
     Route: 048
  5. BISOPROLOL [Concomitant]
     Route: 048
  6. BENUR [Concomitant]
     Route: 048

REACTIONS (2)
  - Abdominal pain upper [Unknown]
  - Troponin increased [Unknown]
